FAERS Safety Report 4712524-8 (Version None)
Quarter: 2005Q2

REPORT INFORMATION
  Report Type: 
  Country: None (occurrence: None)
  Receive Date: 20050629
  Receipt Date: 20050414
  Transmission Date: 20051028
  Serious: No
  Sender: FDA-Public Use
  Company Number: 05P-163-0297405-00

PATIENT
  Age: 41 Year
  Sex: Female
  Weight: 51.7101 kg

DRUGS (5)
  1. HUMIRA [Suspect]
     Indication: RHEUMATOID ARTHRITIS
     Dosage: 40 MG, 1 IN 2 WK, SUBCUTANEOUS
     Route: 058
     Dates: start: 20040701
  2. PREDNISONE [Concomitant]
  3. SULINDAC [Concomitant]
  4. ESTROGENS CONJUGATED [Concomitant]
  5. MEDROXYPROGESTERONE ACETATE [Concomitant]

REACTIONS (5)
  - DYSPNOEA [None]
  - PHARYNGITIS [None]
  - PHARYNGITIS STREPTOCOCCAL [None]
  - PITYRIASIS ROSEA [None]
  - SINUSITIS [None]
